FAERS Safety Report 4726106-5 (Version None)
Quarter: 2005Q3

REPORT INFORMATION
  Report Type: 
  Country: None (occurrence: None)
  Receive Date: 20050727
  Receipt Date: 20050719
  Transmission Date: 20060218
  Serious: Yes (Other)
  Sender: FDA-Public Use
  Company Number: PHBS2005FR10364

PATIENT
  Age: 42 Year
  Sex: Male

DRUGS (4)
  1. CYCLOSPORINE [Suspect]
     Indication: RENAL TRANSPLANT
  2. AZATHIOPRINE [Suspect]
     Indication: RENAL TRANSPLANT
  3. PREDNISONE [Suspect]
     Indication: RENAL TRANSPLANT
  4. MYCOPHENOLATE MOFETIL [Suspect]
     Indication: RENAL TRANSPLANT
     Dates: end: 20000401

REACTIONS (6)
  - BLOOD CREATININE INCREASED [None]
  - DISEASE RECURRENCE [None]
  - GLOMERULONEPHRITIS PROLIFERATIVE [None]
  - KIDNEY TRANSPLANT REJECTION [None]
  - NON-SMALL CELL LUNG CANCER [None]
  - PROTEINURIA [None]
